FAERS Safety Report 6118018-X (Version None)
Quarter: 2009Q1

REPORT INFORMATION
  Report Type: 
  Country: None (occurrence: None)
  Receive Date: 20090314
  Receipt Date: 20090204
  Transmission Date: 20090719
  Serious: No
  Sender: FDA-Public Use
  Company Number: US-ABBOTT-09P-163-0501898-00

PATIENT
  Sex: Male
  Weight: 66.284 kg

DRUGS (3)
  1. HUMIRA [Suspect]
     Indication: CROHN'S DISEASE
     Dosage: STARTED WITH 160MG LOADING DOSE
     Route: 058
     Dates: start: 20080613, end: 20081001
  2. HUMIRA [Suspect]
     Route: 058
     Dates: start: 20081001, end: 20090116
  3. ASACOL [Concomitant]
     Indication: CROHN'S DISEASE
     Dosage: 4 TABS TID
     Route: 048

REACTIONS (5)
  - CLOSTRIDIAL INFECTION [None]
  - CYST [None]
  - DRUG INEFFECTIVE [None]
  - FREQUENT BOWEL MOVEMENTS [None]
  - WEIGHT DECREASED [None]
